FAERS Safety Report 7291447-7 (Version None)
Quarter: 2011Q1

REPORT INFORMATION
  Report Type: 
  Country: None (occurrence: None)
  Receive Date: 20110202
  Receipt Date: 20110120
  Transmission Date: 20110831
  Serious: Yes (Hospitalization, Other)
  Sender: FDA-Public Use
  Company Number: 2011MA000566

PATIENT
  Sex: Female

DRUGS (4)
  1. PREV MEDS [Concomitant]
  2. FEVERALL [Suspect]
     Indication: ILL-DEFINED DISORDER
  3. CON MEDS [Concomitant]
  4. RISPERIDONE [Suspect]
     Indication: ILL-DEFINED DISORDER
     Dosage: 37.5 MG; IM
     Route: 030

REACTIONS (2)
  - INTENTIONAL OVERDOSE [None]
  - DRUG DOSE OMISSION [None]
